FAERS Safety Report 8920431 (Version 9)
Quarter: 2013Q4

REPORT INFORMATION
  Report Type: Spontaneous
  Country: US (occurrence: US)
  Receive Date: 20121121
  Receipt Date: 20131120
  Transmission Date: 20140711
  Serious: Yes (Hospitalization, Other)
  Sender: FDA-Public Use
  Company Number: US-PFIZER INC-2012268498

PATIENT
  Age: 45 Year
  Sex: Male
  Weight: 127 kg

DRUGS (24)
  1. CHANTIX [Suspect]
     Indication: SMOKING CESSATION THERAPY
     Dosage: 0.5 MG, 1X/DAY
     Route: 048
     Dates: start: 201209, end: 2012
  2. CHANTIX [Suspect]
     Dosage: 1 MG, 2X/DAY
     Route: 048
     Dates: start: 2012
  3. CHANTIX [Suspect]
     Dosage: UNK
     Route: 048
     Dates: start: 2013, end: 2013
  4. OXYCONTIN [Suspect]
     Indication: PAIN IN EXTREMITY
     Dosage: 20 MG, 2X/DAY
  5. LITHIUM CARBONATE [Concomitant]
     Indication: DEPRESSION
     Dosage: 300 MG, 3X/DAY
     Dates: start: 20121004
  6. LITHIUM CARBONATE [Concomitant]
     Indication: BIPOLAR DISORDER
  7. LITHIUM CARBONATE [Concomitant]
     Indication: BIPOLAR I DISORDER
  8. ATIVAN [Concomitant]
     Indication: ANXIETY
     Dosage: 1 MG, 4X/DAY  (1 TAB PO Q6H PRN)
     Route: 048
  9. ATIVAN [Concomitant]
     Indication: AGITATION
  10. LORAZEPAM [Concomitant]
     Dosage: 1 MG, UNK
     Route: 048
     Dates: start: 20121004
  11. LIDODERM PATCH [Concomitant]
     Dosage: UNK, (EXTERNAL PATCH 5 %)
     Dates: start: 20130108, end: 20130206
  12. METOPROLOL TARTRATE [Concomitant]
     Dosage: 25 MG, UNK
     Route: 048
     Dates: start: 20130206, end: 20130307
  13. TRAZODONE HYDROCHLORIDE [Concomitant]
     Dosage: 50 MG, UNK
     Route: 048
     Dates: start: 20130206, end: 20130307
  14. XARELTO [Concomitant]
     Dosage: 20 MG, 1X/DAY
     Route: 048
     Dates: start: 20130225
  15. NITROSTAT [Concomitant]
     Dosage: 0.4 MG, UNK
     Route: 060
     Dates: start: 20130307, end: 20130405
  16. BACLOFEN [Concomitant]
     Dosage: 10 MG, 3X/DAY
     Route: 048
     Dates: start: 20130402
  17. METOPROLOL SUCCINATE [Concomitant]
     Dosage: 100 MG, (ER ORAL TABLET EXTENDED RELEASE 24 HOU 100 MG)
     Route: 048
     Dates: start: 20130507, end: 20130605
  18. BYSTOLIC [Concomitant]
     Dosage: 5 MG, UNK
     Route: 048
     Dates: start: 20130604, end: 20130703
  19. PREDNISONE [Concomitant]
     Dosage: 5 MG, UNK
     Route: 048
     Dates: start: 20130614, end: 20130621
  20. VALSARTAN [Concomitant]
     Dosage: [HYDROCHLOROTHIAZIDE 12.5 MG]/ [VALSARTAN 160 MG], UNK
     Dates: start: 20130702
  21. VALSARTAN [Concomitant]
     Dosage: [HYDROCHLOROTHIAZIDE 12.5 MG]/ [VALSARTAN 160 MG], UNK
     Route: 048
     Dates: start: 20130729, end: 20130827
  22. OMEPRAZOLE [Concomitant]
     Dosage: 20 MG, UNK (DELAYED RELEASE)
     Route: 048
     Dates: start: 20130718, end: 20130816
  23. PRILOSEC OTC [Concomitant]
     Dosage: 20 MG, 1X/DAY
     Route: 048
  24. NITROQUICK [Concomitant]
     Dosage: 0.4 MG, (1 TAB SL Q 5 MIN)
     Route: 060

REACTIONS (21)
  - Pulmonary thrombosis [Not Recovered/Not Resolved]
  - Intracardiac thrombus [Not Recovered/Not Resolved]
  - Pulmonary artery thrombosis [Unknown]
  - Deep vein thrombosis [Unknown]
  - Hallucination [Unknown]
  - Dizziness [Unknown]
  - Chest pain [Not Recovered/Not Resolved]
  - Thrombosis [Not Recovered/Not Resolved]
  - Pulmonary embolism [Unknown]
  - Abnormal behaviour [Unknown]
  - Local swelling [Unknown]
  - Erectile dysfunction [Unknown]
  - Nerve injury [Not Recovered/Not Resolved]
  - Drug screen false positive [Unknown]
  - Epistaxis [Unknown]
  - Muscle twitching [Unknown]
  - Tobacco user [Unknown]
  - Feeling abnormal [Unknown]
  - Accident [Unknown]
  - Drug ineffective [Unknown]
  - Chronic obstructive pulmonary disease [Unknown]
